FAERS Safety Report 22920697 (Version 2)
Quarter: 2024Q1

REPORT INFORMATION
  Report Type: Other
  Country: US (occurrence: None)
  Receive Date: 20230908
  Receipt Date: 20240107
  Transmission Date: 20240410
  Serious: No
  Sender: FDA-Public Use
  Company Number: US-ROCHE-3414894

PATIENT
  Age: 40 Year
  Sex: Female
  Weight: 79.37 kg

DRUGS (5)
  1. OCREVUS [Suspect]
     Active Substance: OCRELIZUMAB
     Indication: Multiple sclerosis
     Dosage: SECOND DOSE ON 01/MAR/2023
     Route: 042
     Dates: start: 20230215
  2. SOLU-MEDROL [Concomitant]
     Active Substance: METHYLPREDNISOLONE SODIUM SUCCINATE
     Dosage: 01/MAR/2023 AND 27/OCT/2023
     Route: 042
     Dates: start: 20230215
  3. BENADRYL [Concomitant]
     Active Substance: DIPHENHYDRAMINE HYDROCHLORIDE
     Dosage: 1/MAR/2023 AND 27/OCT/2023
     Route: 048
     Dates: start: 20230215, end: 20230215
  4. TYLENOL [Concomitant]
     Active Substance: ACETAMINOPHEN
     Dosage: 1/MAR/2023 AND 27/OCT/2023
     Route: 048
     Dates: start: 20230215, end: 20230215
  5. PROVIGIL [Concomitant]
     Active Substance: MODAFINIL
     Dosage: 1 TABLET EVERY MORNING
     Route: 048
     Dates: start: 20230919

REACTIONS (3)
  - JC polyomavirus test positive [Unknown]
  - Abortion spontaneous [Unknown]
  - Maternal exposure timing unspecified [Unknown]
